FAERS Safety Report 5050658-1 (Version None)
Quarter: 2006Q3

REPORT INFORMATION
  Report Type: 
  Country: None (occurrence: None)
  Receive Date: 20060710
  Receipt Date: 20060630
  Transmission Date: 20061208
  Serious: Yes (Hospitalization)
  Sender: FDA-Public Use
  Company Number: 2006-06-2165

PATIENT
  Sex: Female

DRUGS (9)
  1. ISOSORBIDE MONONITRATE [Suspect]
     Indication: ANGINA PECTORIS
     Dosage: 60 MG QD ORAL
     Route: 048
  2. FUROSEMIDE [Suspect]
     Indication: FLUID RETENTION
     Dosage: 40 MG QD ORAL
     Route: 048
  3. AMITRIPTYLINE HCL [Concomitant]
  4. BETAMETHASONE [Concomitant]
  5. CHLORDIAZEPOXIDE [Concomitant]
  6. EZETROL (EZETIMIBE) [Concomitant]
  7. NICORANDIL [Concomitant]
  8. RANITIDINE [Concomitant]
  9. XALATAN [Concomitant]

REACTIONS (3)
  - BLOOD CREATININE INCREASED [None]
  - BLOOD UREA INCREASED [None]
  - HYPOVOLAEMIA [None]
